FAERS Safety Report 9049531 (Version 4)
Quarter: 2013Q2

REPORT INFORMATION
  Report Type: Spontaneous
  Country: DE (occurrence: JP)
  Receive Date: 20130205
  Receipt Date: 20130423
  Transmission Date: 20140414
  Serious: Yes (Other)
  Sender: FDA-Public Use
  Company Number: JP-FRI-1000042381

PATIENT
  Age: 73 Year
  Sex: Female

DRUGS (4)
  1. MEMANTINE [Suspect]
     Indication: DEMENTIA ALZHEIMER^S TYPE
     Dosage: 5 MG
     Route: 048
     Dates: start: 20120623, end: 20120706
  2. MEMANTINE [Suspect]
     Dosage: 10 MG
     Route: 048
     Dates: start: 20120707, end: 20120824
  3. MEMANTINE [Suspect]
     Indication: DEMENTIA ALZHEIMER^S TYPE
     Dosage: 20 MG
     Route: 048
     Dates: start: 20120825, end: 20130123
  4. ARICEPT [Concomitant]
     Dosage: 5 MG
     Route: 048
     Dates: start: 20110519

REACTIONS (1)
  - Sudden onset of sleep [Recovered/Resolved]
